FAERS Safety Report 5320365-6 (Version None)
Quarter: 2007Q2

REPORT INFORMATION
  Report Type: 
  Country: None (occurrence: None)
  Receive Date: 20070509
  Receipt Date: 20070427
  Transmission Date: 20071010
  Serious: Yes (Other)
  Sender: FDA-Public Use
  Company Number: JP-ROCHE-491751

PATIENT
  Age: 5 Year
  Sex: Male
  Weight: 18 kg

DRUGS (4)
  1. TAMIFLU [Suspect]
     Dosage: FORM: DRY SYRUP.
     Route: 048
     Dates: start: 20070402, end: 20070402
  2. BENZODIAZEPINE NOS [Suspect]
     Indication: DRUG USE FOR UNKNOWN INDICATION
     Dosage: REPORTED AS: BENZODIAZEPIN DERIVATES AND PREPARATIONS.
     Route: 065
  3. ASVERIN [Concomitant]
     Dosage: GENERIC NAME: TIPEPIDINE HIBENZATE.
     Route: 048
     Dates: start: 20070402
  4. MUCODYNE [Concomitant]
     Route: 048
     Dates: start: 20070402

REACTIONS (2)
  - CONVULSION [None]
  - FEBRILE CONVULSION [None]
